FAERS Safety Report 10687827 (Version 2)
Quarter: 2015Q1

REPORT INFORMATION
  Report Type: Spontaneous
  Country: DK (occurrence: None)
  Receive Date: 20141230
  Receipt Date: 20150129
  Transmission Date: 20150720
  Serious: No
  Sender: FDA-Public Use
  Company Number: DK-LHC-2014116

PATIENT
  Sex: Female

DRUGS (1)
  1. CONOXIA (OXYGEN) (GAS FOR INHALATION) (VERUM) [Suspect]
     Active Substance: OXYGEN
     Indication: ACCIDENTAL EXPOSURE TO PRODUCT

REACTIONS (5)
  - Hypoaesthesia [None]
  - Frostbite [None]
  - Device physical property issue [None]
  - Accidental exposure to product [None]
  - Device defective [None]

NARRATIVE: CASE EVENT DATE: 20141219
